FAERS Safety Report 5209929-8 (Version None)
Quarter: 2006Q4

REPORT INFORMATION
  Report Type: 
  Country: None (occurrence: None)
  Receive Date: 20061130
  Receipt Date: 20040528
  Transmission Date: 20070319
  Serious: Yes (Hospitalization)
  Sender: FDA-Public Use
  Company Number: 2004UW11337

PATIENT
  Sex: Male

DRUGS (2)
  1. ATACAND [Suspect]
  2. CRESTOR [Suspect]
     Dates: start: 20040501, end: 20040501

REACTIONS (3)
  - CHEST PAIN [None]
  - MYALGIA [None]
  - PAIN IN EXTREMITY [None]
